FAERS Safety Report 7722474-0 (Version None)
Quarter: 2011Q3

REPORT INFORMATION
  Report Type: 
  Country: None (occurrence: None)
  Receive Date: 20110831
  Receipt Date: 20110824
  Transmission Date: 20111222
  Serious: Yes (Life-Threatening, Other)
  Sender: FDA-Public Use
  Company Number: NL-ROXANE LABORATORIES, INC.-2011-RO-01191RO

PATIENT
  Age: 18 Year
  Sex: Male

DRUGS (1)
  1. PROPRANOLOL [Suspect]
     Dosage: 80 MG
     Route: 048

REACTIONS (2)
  - CONVULSION [None]
  - CARDIO-RESPIRATORY ARREST [None]
